FAERS Safety Report 9769400 (Version 1)
Quarter: 2013Q4

REPORT INFORMATION
  Report Type: Spontaneous
  Country: US (occurrence: None)
  Receive Date: 20131217
  Receipt Date: 20131217
  Transmission Date: 20140711
  Serious: Yes (Hospitalization, Disabling)
  Sender: FDA-Public Use
  Company Number: None

PATIENT
  Age: 28 Year
  Sex: Male
  Weight: 63.5 kg

DRUGS (11)
  1. LEVOFLOXACIN [Suspect]
     Indication: SINUSITIS
     Dosage: 1 PILL; ONCE DAILY
     Route: 048
     Dates: start: 20111011, end: 20111024
  2. ZOLOFT [Concomitant]
  3. TOPROLOL [Concomitant]
  4. VITAMIN C [Concomitant]
  5. MAGNESIUM [Concomitant]
  6. B12 [Concomitant]
  7. B5 [Concomitant]
  8. CALCIUM [Concomitant]
  9. VITAMIN K [Concomitant]
  10. PROBIOTICS [Concomitant]
  11. VITAMIN D [Concomitant]

REACTIONS (13)
  - Fatigue [None]
  - Vertigo [None]
  - Dizziness [None]
  - Dizziness [None]
  - Job dissatisfaction [None]
  - Headache [None]
  - Vision blurred [None]
  - Diplopia [None]
  - Tachycardia [None]
  - Tremor [None]
  - Tremor [None]
  - Asthenia [None]
  - Hypoglycaemia [None]
